FAERS Safety Report 6943806 (Version 3)
Quarter: 2016Q1

REPORT INFORMATION
  Report Type: Spontaneous
  Country: FR (occurrence: FR)
  Receive Date: 20090318
  Receipt Date: 20160203
  Transmission Date: 20160526
  Serious: Yes (Congenital Anomaly, Other)
  Sender: FDA-Public Use
  Company Number: FR-BRISTOL-MYERS SQUIBB COMPANY-14544530

PATIENT
  Sex: Female
  Weight: 3.49 kg

DRUGS (3)
  1. VITAMIN B12 [Concomitant]
     Active Substance: CYANOCOBALAMIN
     Indication: PRODUCT USED FOR UNKNOWN INDICATION
     Dosage: 1000/GAMMA/MONTH.
     Route: 064
  2. QUESTRAN [Suspect]
     Active Substance: CHOLESTYRAMINE
     Indication: PRODUCT USED FOR UNKNOWN INDICATION
     Dosage: QUESTRAN POWDER 4 G HALF A SACHET A DAY ORALLY BY MOTHER
     Route: 064
  3. IMUREL [Suspect]
     Active Substance: AZATHIOPRINE SODIUM
     Indication: PRODUCT USED FOR UNKNOWN INDICATION
     Dosage: 125 MILLIGRAM/D THEN 50 MG/D IN THE THIRD TRIMESTER
     Route: 064

REACTIONS (2)
  - Diastematomyelia [Recovered/Resolved]
  - Foetal exposure during pregnancy [Unknown]
